FAERS Safety Report 18654480 (Version 2)
Quarter: 2021Q1

REPORT INFORMATION
  Report Type: Other
  Country: US (occurrence: US)
  Receive Date: 20201223
  Receipt Date: 20210115
  Transmission Date: 20210419
  Serious: Yes (Other)
  Sender: FDA-Public Use
  Company Number: US-ROCHE-2734929

PATIENT
  Age: 64 Year
  Sex: Male

DRUGS (5)
  1. METHYLPREDNISOLONE. [Suspect]
     Active Substance: METHYLPREDNISOLONE
     Indication: GLOMERULONEPHRITIS RAPIDLY PROGRESSIVE
     Route: 042
  2. METHYLPREDNISOLONE. [Suspect]
     Active Substance: METHYLPREDNISOLONE
     Indication: ANTI-NEUTROPHIL CYTOPLASMIC ANTIBODY POSITIVE VASCULITIS
  3. RITUXIMAB. [Suspect]
     Active Substance: RITUXIMAB
     Indication: ANTI-NEUTROPHIL CYTOPLASMIC ANTIBODY POSITIVE VASCULITIS
  4. TOCILIZUMAB. [Suspect]
     Active Substance: TOCILIZUMAB
     Indication: COVID-19
     Route: 042
  5. RITUXIMAB. [Suspect]
     Active Substance: RITUXIMAB
     Indication: GLOMERULONEPHRITIS RAPIDLY PROGRESSIVE
     Dosage: ONCE
     Route: 042

REACTIONS (3)
  - Staphylococcal bacteraemia [Unknown]
  - Intentional product use issue [Unknown]
  - Off label use [Unknown]
